FAERS Safety Report 17281648 (Version 1)
Quarter: 2020Q1

REPORT INFORMATION
  Report Type: Spontaneous
  Country: US (occurrence: US)
  Receive Date: 20200117
  Receipt Date: 20200117
  Transmission Date: 20200409
  Serious: Yes (Hospitalization, Other)
  Sender: FDA-Public Use
  Company Number: US-SA-2020SA008624

PATIENT
  Age: 74 Year
  Sex: Male

DRUGS (2)
  1. ELITEK [Suspect]
     Active Substance: RASBURICASE
     Indication: MARGINAL ZONE LYMPHOMA
     Dosage: UNK UNK, 1X
     Route: 065
     Dates: start: 20200107, end: 20200107
  2. RITUXAN [Suspect]
     Active Substance: RITUXIMAB
     Indication: MARGINAL ZONE LYMPHOMA
     Dosage: 375 MG/M2, QW
     Route: 065

REACTIONS (3)
  - Glucose-6-phosphate dehydrogenase deficiency [Unknown]
  - Ascites [Unknown]
  - Pleural effusion [Unknown]

NARRATIVE: CASE EVENT DATE: 202001
